FAERS Safety Report 16593904 (Version 1)
Quarter: 2019Q3

REPORT INFORMATION
  Report Type: Spontaneous
  Country: US (occurrence: US)
  Receive Date: 20190718
  Receipt Date: 20190718
  Transmission Date: 20191004
  Serious: No
  Sender: FDA-Public Use
  Company Number: US-SWEDISH ORPHAN BIOVITRUM-2018US1541

PATIENT
  Sex: Female

DRUGS (5)
  1. KINERET [Suspect]
     Active Substance: ANAKINRA
     Indication: HIDRADENITIS
     Route: 058
     Dates: start: 201811
  2. AZITHROMYCIN ANHYDROUS. [Suspect]
     Active Substance: AZITHROMYCIN ANHYDROUS
  3. ALBUTEROL. [Concomitant]
     Active Substance: ALBUTEROL
  4. HYDROCORTISONE. [Concomitant]
     Active Substance: HYDROCORTISONE
  5. BENADRYL [Concomitant]
     Active Substance: DIPHENHYDRAMINE HYDROCHLORIDE

REACTIONS (4)
  - Nasopharyngitis [Unknown]
  - Injection site urticaria [Unknown]
  - Injection site erythema [Unknown]
  - Injection site pruritus [Unknown]

NARRATIVE: CASE EVENT DATE: 2018
